FAERS Safety Report 4828496-1 (Version None)
Quarter: 2005Q4

REPORT INFORMATION
  Report Type: 
  Country: None (occurrence: None)
  Receive Date: 20051115
  Receipt Date: 20051104
  Transmission Date: 20060501
  Serious: Yes (Life-Threatening)
  Sender: FDA-Public Use
  Company Number: JP-ROCHE-423398

PATIENT
  Age: 58 Year
  Sex: Male

DRUGS (3)
  1. NICARDIPINE HCL [Suspect]
     Indication: AORTIC DISSECTION
     Dosage: SECOND INDICATION: HYPERTENSION.
     Route: 042
     Dates: end: 20051031
  2. HERBESSER [Suspect]
     Indication: AORTIC DISSECTION
     Dosage: SECOND INDICATION: HYPERTENSION.
     Route: 042
     Dates: end: 20051031
  3. CARVEDILOL [Concomitant]
     Route: 048
     Dates: end: 20051031

REACTIONS (1)
  - BRADYCARDIA [None]
